FAERS Safety Report 4473983-1 (Version None)
Quarter: 2004Q4

REPORT INFORMATION
  Report Type: 
  Country: None (occurrence: None)
  Receive Date: 20041012
  Receipt Date: 20041012
  Transmission Date: 20050328
  Serious: No
  Sender: FDA-Public Use
  Company Number: None

PATIENT
  Sex: Female

DRUGS (2)
  1. NEXIUM [Suspect]
     Indication: GASTROOESOPHAGEAL REFLUX DISEASE
     Dosage: 1 TAB DAILY
  2. PREVACID [Suspect]
     Indication: EROSIVE OESOPHAGITIS
     Dosage: 1 TAB DAILY

REACTIONS (1)
  - HYPERSENSITIVITY [None]
